FAERS Safety Report 5639681-3 (Version None)
Quarter: 2008Q1

REPORT INFORMATION
  Report Type: 
  Country: None (occurrence: None)
  Receive Date: 20080131
  Receipt Date: 20071218
  Transmission Date: 20080703
  Serious: Yes (Disabling)
  Sender: FDA-Public Use
  Company Number: 163-21880-07110298

PATIENT
  Age: 60 Year
  Sex: Male

DRUGS (4)
  1. REVLIMID [Suspect]
     Indication: AMYLOIDOSIS
     Dosage: 20 MG, QD X20 DAYS, ORAL ; 25 MG, QD X21 DAYS, ORAL ; 15 MG, DAILY X 14 DAYS, ORAL
     Route: 048
     Dates: start: 20070501, end: 20070801
  2. REVLIMID [Suspect]
     Indication: AMYLOIDOSIS
     Dosage: 20 MG, QD X20 DAYS, ORAL ; 25 MG, QD X21 DAYS, ORAL ; 15 MG, DAILY X 14 DAYS, ORAL
     Route: 048
     Dates: start: 20070507
  3. REVLIMID [Suspect]
     Indication: AMYLOIDOSIS
     Dosage: 20 MG, QD X20 DAYS, ORAL ; 25 MG, QD X21 DAYS, ORAL ; 15 MG, DAILY X 14 DAYS, ORAL
     Route: 048
     Dates: start: 20070901
  4. ASPIRIN [Concomitant]

REACTIONS (1)
  - MUSCLE SPASMS [None]
